FAERS Safety Report 12922977 (Version 2)
Quarter: 2016Q4

REPORT INFORMATION
  Report Type: Spontaneous
  Country: CH (occurrence: TR)
  Receive Date: 20161109
  Receipt Date: 20161129
  Transmission Date: 20170207
  Serious: Yes (Other)
  Sender: FDA-Public Use
  Company Number: CH-LPDUSPRD-20160999

PATIENT
  Age: 26 Year
  Sex: Female
  Weight: 64 kg

DRUGS (2)
  1. FERINJECT [Suspect]
     Active Substance: FERRIC CARBOXYMALTOSE
     Dosage: 2 AMPOULE
     Route: 041
     Dates: start: 20161017, end: 20161017
  2. LEVOTIRON [Suspect]
     Active Substance: LEVOTHYROXINE SODIUM
     Dosage: 50 MG
     Route: 065

REACTIONS (5)
  - Tremor [Unknown]
  - Asthenia [Unknown]
  - Insomnia [Unknown]
  - Nausea [Unknown]
  - Pyrexia [Unknown]

NARRATIVE: CASE EVENT DATE: 20161017
